FAERS Safety Report 5888926-3 (Version None)
Quarter: 2008Q3

REPORT INFORMATION
  Report Type: 
  Country: None (occurrence: None)
  Receive Date: 20080916
  Receipt Date: 20080902
  Transmission Date: 20090109
  Serious: No
  Sender: FDA-Public Use
  Company Number: 003047

PATIENT
  Age: 70 Year
  Sex: Male

DRUGS (6)
  1. PLETAL [Suspect]
     Indication: CEREBRAL INFARCTION
     Dates: start: 20050428, end: 20080710
  2. PLETAL [Suspect]
     Indication: CEREBRAL INFARCTION
     Dates: start: 20080714
  3. SELBEX (TEPRENONE) CAPSULE [Concomitant]
  4. URINORM (BENZBROMARONE) TABLET [Concomitant]
  5. URALYT-U (POTASSIUM CITRATE, SODIUM CITRATE) POWDER [Concomitant]
  6. OLMETEC (OLMESARTAN MEDOXOMIL) TABLET [Concomitant]

REACTIONS (6)
  - DUODENAL ULCER [None]
  - GASTRIC ULCER [None]
  - GASTRITIS [None]
  - GASTROINTESTINAL HAEMORRHAGE [None]
  - HYPOCHROMIC ANAEMIA [None]
  - MALAISE [None]
